FAERS Safety Report 23879390 (Version 1)
Quarter: 2024Q2

REPORT INFORMATION
  Report Type: Spontaneous
  Country: US (occurrence: US)
  Receive Date: 20240521
  Receipt Date: 20240521
  Transmission Date: 20240716
  Serious: No
  Sender: FDA-Public Use
  Company Number: US-HORIZON THERAPEUTICS-HZN-2024-004539

PATIENT

DRUGS (2)
  1. KRYSTEXXA [Suspect]
     Active Substance: PEGLOTICASE
     Indication: Product used for unknown indication
     Dosage: FIRST INFUSION
     Route: 042
     Dates: start: 20240320
  2. KRYSTEXXA [Suspect]
     Active Substance: PEGLOTICASE
     Dosage: SECOND INFUSION
     Route: 042
     Dates: end: 20240403

REACTIONS (2)
  - Rash [Recovered/Resolved]
  - Drug ineffective [Unknown]

NARRATIVE: CASE EVENT DATE: 20240101
